FAERS Safety Report 3960780 (Version 3)
Quarter: 2014Q2

REPORT INFORMATION
  Report Type: Spontaneous
  Country: JP (occurrence: None)
  Receive Date: 20030612
  Receipt Date: 20140402
  Transmission Date: 20141212
  Serious: Yes (Disabling)
  Sender: FDA-Public Use
  Company Number: 2003JP006281

PATIENT
  Age: 50 Year
  Sex: Male
  Weight: 71.8 kg

DRUGS (5)
  1. PROGRAF [Suspect]
     Indication: RENAL TRANSPLANT
     Route: 048
     Dates: start: 20010521, end: 20020410
  2. MEDROL [Concomitant]
  3. CELLCEPT [Concomitant]
  4. CALCIUM LACTATE (CALCIUM LACTATE) [Concomitant]
  5. INSULIN NOS [Concomitant]

REACTIONS (2)
  - Gangrene [None]
  - Toe amputation [None]
